FAERS Safety Report 6590686-8 (Version None)
Quarter: 2010Q1

REPORT INFORMATION
  Report Type: 
  Country: None (occurrence: None)
  Receive Date: 20100219
  Receipt Date: 20100215
  Transmission Date: 20100710
  Serious: Yes (Life-Threatening)
  Sender: FDA-Public Use
  Company Number: B0633648A

PATIENT
  Sex: Female

DRUGS (1)
  1. LAMICTAL [Suspect]
     Indication: EPILEPSY
     Route: 048
     Dates: start: 20091212, end: 20100115

REACTIONS (9)
  - DYSPHAGIA [None]
  - ERYTHEMA [None]
  - GAIT DISTURBANCE [None]
  - MOUTH ULCERATION [None]
  - PYREXIA [None]
  - RASH MACULAR [None]
  - RASH VESICULAR [None]
  - RESPIRATORY DISORDER [None]
  - STEVENS-JOHNSON SYNDROME [None]
